FAERS Safety Report 8798588 (Version 1)
Quarter: 2012Q4

REPORT INFORMATION
  Report Type: 
  Country: US (occurrence: US)
  Receive Date: 20120917
  Receipt Date: 20120917
  Transmission Date: 20130627
  Serious: Yes (Hospitalization)
  Sender: FDA-Public Use
  Company Number: US-ASTRAZENECA-2012SE70812

PATIENT
  Age: 85 Year
  Sex: Female

DRUGS (1)
  1. PULMICORT FLEXHALER [Suspect]
     Route: 055

REACTIONS (1)
  - Fall [Unknown]
